FAERS Safety Report 5157929-9 (Version None)
Quarter: 2006Q4

REPORT INFORMATION
  Report Type: 
  Country: None (occurrence: None)
  Receive Date: 20061115
  Receipt Date: 20061106
  Transmission Date: 20070319
  Serious: Yes (Other)
  Sender: FDA-Public Use
  Company Number: 227783

PATIENT
  Age: 19 Year
  Sex: Female

DRUGS (4)
  1. XOLAIR [Suspect]
     Indication: ASTHMA
     Dosage: 300 MG, Q4W, SUBCUTANEOUS
     Route: 058
     Dates: start: 20060102, end: 20060512
  2. FLUTIDE (FLUTICASONE PROPIONATE) [Concomitant]
  3. SALBUTAMOL (ALBUTEROL/ALBUTEROL SULFATE) [Concomitant]
  4. SINGULAIR [Concomitant]

REACTIONS (16)
  - BLOOD IMMUNOGLOBULIN E INCREASED [None]
  - DISEASE RECURRENCE [None]
  - HEADACHE [None]
  - IMMUNE COMPLEX LEVEL INCREASED [None]
  - INFLAMMATION [None]
  - INFLUENZA LIKE ILLNESS [None]
  - INJECTION SITE ERYTHEMA [None]
  - INJECTION SITE REACTION [None]
  - INJECTION SITE WARMTH [None]
  - INTERLEUKIN LEVEL INCREASED [None]
  - JOINT SWELLING [None]
  - MIGRAINE [None]
  - OEDEMA PERIPHERAL [None]
  - PAIN IN EXTREMITY [None]
  - SERUM SICKNESS [None]
  - SKIN REACTION [None]
